FAERS Safety Report 24303900 (Version 2)
Quarter: 2025Q2

REPORT INFORMATION
  Report Type: Spontaneous
  Country: US (occurrence: US)
  Receive Date: 20240910
  Receipt Date: 20250623
  Transmission Date: 20250716
  Serious: No
  Sender: PFIZER
  Company Number: US-PFIZER INC-202400253142

PATIENT
  Age: 57 Year
  Sex: Female

DRUGS (4)
  1. XELJANZ XR [Suspect]
     Active Substance: TOFACITINIB CITRATE
     Indication: Rheumatoid arthritis
     Dates: end: 202409
  2. XELJANZ XR [Suspect]
     Active Substance: TOFACITINIB CITRATE
     Indication: Osteoarthritis
  3. OZEMPIC [Concomitant]
     Active Substance: SEMAGLUTIDE
  4. LIPITOR [Concomitant]
     Active Substance: ATORVASTATIN CALCIUM

REACTIONS (2)
  - White blood cell count decreased [Unknown]
  - Condition aggravated [Unknown]

NARRATIVE: CASE EVENT DATE: 20240901
